FAERS Safety Report 10485719 (Version 2)
Quarter: 2015Q4

REPORT INFORMATION
  Report Type: Report from Study
  Country: US (occurrence: US)
  Receive Date: 20141001
  Receipt Date: 20151102
  Transmission Date: 20160304
  Serious: Yes (Other)
  Sender: FDA-Public Use
  Company Number: US-ROCHE-1422042

PATIENT
  Age: 9 Year
  Sex: Male
  Weight: 37.8 kg

DRUGS (12)
  1. NUTROPIN AQ [Suspect]
     Active Substance: SOMATROPIN
     Indication: BODY HEIGHT BELOW NORMAL
     Dosage: 0.48 MG/KG/WEEK
     Route: 058
     Dates: start: 200502
  2. INCRELEX [Concomitant]
     Active Substance: MECASERMIN
     Dosage: 0.12 MG/KG/DOSE
     Route: 065
  3. NUTROPIN AQ [Suspect]
     Active Substance: SOMATROPIN
     Indication: FOETAL GROWTH RESTRICTION
     Route: 058
     Dates: start: 2011
  4. NUTROPIN AQ [Suspect]
     Active Substance: SOMATROPIN
     Dosage: 20 MG/2ML
     Route: 058
     Dates: start: 20150803
  5. INTUNIV [Concomitant]
     Active Substance: GUANFACINE HYDROCHLORIDE
     Route: 048
  6. WELLBUTRIN [Concomitant]
     Active Substance: BUPROPION HYDROCHLORIDE
     Route: 065
  7. NUTROPIN AQ [Suspect]
     Active Substance: SOMATROPIN
     Route: 058
     Dates: end: 201201
  8. ARIMIDEX [Concomitant]
     Active Substance: ANASTROZOLE
     Route: 048
  9. CONCERTA [Concomitant]
     Active Substance: METHYLPHENIDATE HYDROCHLORIDE
     Dosage: 1 TABLET EVERY MORNING
     Route: 048
  10. NUTROPIN AQ [Suspect]
     Active Substance: SOMATROPIN
     Indication: SMALL FOR DATES BABY
     Route: 058
  11. NUTROPIN AQ [Suspect]
     Active Substance: SOMATROPIN
     Route: 058
     Dates: start: 201201
  12. PROZAC [Concomitant]
     Active Substance: FLUOXETINE HYDROCHLORIDE
     Dosage: TAKE 2 EVERY MORNING
     Route: 048

REACTIONS (12)
  - Incorrect dose administered [Unknown]
  - Constipation [Unknown]
  - Growth retardation [Unknown]
  - Disturbance in attention [Unknown]
  - Irritable bowel syndrome [Unknown]
  - Pharyngitis streptococcal [Unknown]
  - Foot fracture [Unknown]
  - Abdominal distension [Unknown]
  - Dysgeusia [Unknown]
  - Asthma [Unknown]
  - Speech disorder [Unknown]
  - Therapeutic response decreased [Unknown]

NARRATIVE: CASE EVENT DATE: 20070701
